FAERS Safety Report 14910647 (Version 2)
Quarter: 2018Q2

REPORT INFORMATION
  Report Type: Spontaneous
  Country: US (occurrence: US)
  Receive Date: 20180517
  Receipt Date: 20180531
  Transmission Date: 20180711
  Serious: Yes (Life-Threatening, Hospitalization, Other)
  Sender: FDA-Public Use
  Company Number: US-NEUROCRINE BIOSCIENCES INC.-2018NBI01420

PATIENT
  Age: 57 Year
  Sex: Female

DRUGS (5)
  1. INGREZZA [Suspect]
     Active Substance: VALBENAZINE
     Indication: TARDIVE DYSKINESIA
     Route: 048
     Dates: start: 201802, end: 20180302
  2. INGREZZA [Suspect]
     Active Substance: VALBENAZINE
     Route: 048
     Dates: start: 20180303, end: 20180518
  3. KLONOPIN [Suspect]
     Active Substance: CLONAZEPAM
     Dates: start: 201805
  4. KLONOPIN [Suspect]
     Active Substance: CLONAZEPAM
     Indication: PRODUCT USED FOR UNKNOWN INDICATION
     Dates: end: 201805
  5. KLONOPIN [Suspect]
     Active Substance: CLONAZEPAM
     Dates: start: 201805, end: 201805

REACTIONS (9)
  - Speech disorder [Recovering/Resolving]
  - Pneumonia aspiration [Recovered/Resolved]
  - Urinary incontinence [Recovering/Resolving]
  - Diarrhoea [Unknown]
  - Mental status changes [Recovering/Resolving]
  - Asthenia [Recovering/Resolving]
  - Confusional state [Recovering/Resolving]
  - Respiratory failure [Recovered/Resolved]
  - Seizure [Recovered/Resolved]

NARRATIVE: CASE EVENT DATE: 201805
